FAERS Safety Report 7224882-3 (Version None)
Quarter: 2011Q1

REPORT INFORMATION
  Report Type: 
  Country: None (occurrence: None)
  Receive Date: 20110104
  Receipt Date: 20101220
  Transmission Date: 20110831
  Serious: Yes (Hospitalization)
  Sender: FDA-Public Use
  Company Number: 2010-4125

PATIENT
  Sex: Female
  Weight: 80 kg

DRUGS (6)
  1. PRRRT (PEPTIDE RECEPTOR RADIONUCLIDE THERAPY) (ALL OTHER THERAPEUTIC P [Concomitant]
  2. PEGINTERFERON (PEGINTERFERON ALFA-2B) [Concomitant]
  3. INSULIN (INSULIN) [Concomitant]
  4. RADIOLABELLED NUCLEOTIDE THERAPY (ALL OTHER THERAPEUTIC PRODUCTS) [Concomitant]
  5. SOMATULINE DEPOT [Suspect]
     Indication: METASTASES TO LIVER
     Dosage: 90 MG (90 MG), SUBCUTANEOUS; STARTED 120MG
     Route: 058
     Dates: start: 20081017
  6. SOMATULINE DEPOT [Suspect]
     Indication: PANCREATIC NEUROENDOCRINE TUMOUR
     Dosage: 120MG EVERY 28TH DAY (120 MG, 1 IN 28 D), SUBCUTANEOUS
     Route: 058

REACTIONS (4)
  - DRUG INEFFECTIVE [None]
  - HYPERGLYCAEMIA [None]
  - HYPOGLYCAEMIA [None]
  - INSULINOMA [None]
